FAERS Safety Report 9186452 (Version 2)
Quarter: 2013Q2

REPORT INFORMATION
  Report Type: Spontaneous
  Country: FR (occurrence: FR)
  Receive Date: 20130325
  Receipt Date: 20130417
  Transmission Date: 20140414
  Serious: Yes (Hospitalization, Other)
  Sender: FDA-Public Use
  Company Number: FR-TEVA-392942ISR

PATIENT
  Age: 26 Year
  Sex: Female

DRUGS (3)
  1. MODIODAL [Suspect]
     Indication: INSOMNIA
     Dosage: 100 MILLIGRAM DAILY;
     Route: 048
     Dates: start: 199907
  2. CHEMOTHERAPY [Concomitant]
     Indication: BREAST CANCER
  3. HORMONE THERAPY [Concomitant]

REACTIONS (15)
  - Breast cancer [Unknown]
  - Malaise [Unknown]
  - Head injury [Unknown]
  - Haematoma [Unknown]
  - Ligament sprain [Unknown]
  - Off label use [Unknown]
  - Underdose [Unknown]
  - Amnesia [Unknown]
  - Blood pressure abnormal [Unknown]
  - Abdominal pain [Unknown]
  - Mood altered [Unknown]
  - Menopause [Unknown]
  - Decreased appetite [Unknown]
  - Dry mouth [Unknown]
  - Aggression [Unknown]
